FAERS Safety Report 14776680 (Version 1)
Quarter: 2018Q2

REPORT INFORMATION
  Report Type: Spontaneous
  Country: FR (occurrence: FR)
  Receive Date: 20180419
  Receipt Date: 20180419
  Transmission Date: 20180711
  Serious: Yes (Other)
  Sender: FDA-Public Use
  Company Number: FR-MERCK KGAA-2045998

PATIENT
  Age: 43 Year
  Sex: Female

DRUGS (1)
  1. NOVOTHYROX [Suspect]
     Active Substance: LEVOTHYROXINE SODIUM
     Indication: POST PROCEDURAL HYPOTHYROIDISM

REACTIONS (17)
  - Sleep disorder [Recovering/Resolving]
  - Marital problem [None]
  - Loss of personal independence in daily activities [None]
  - Social avoidant behaviour [None]
  - Insomnia [None]
  - Asthenia [None]
  - Fatigue [None]
  - Muscular weakness [Recovering/Resolving]
  - Balance disorder [None]
  - Weight increased [Recovering/Resolving]
  - Family stress [None]
  - Glycosylated haemoglobin increased [None]
  - Headache [Recovering/Resolving]
  - Muscle spasms [None]
  - Dizziness [None]
  - Affective disorder [Recovering/Resolving]
  - Alopecia [Recovering/Resolving]

NARRATIVE: CASE EVENT DATE: 20170614
